FAERS Safety Report 19877193 (Version 3)
Quarter: 2022Q1

REPORT INFORMATION
  Report Type: Spontaneous
  Country: CA (occurrence: CA)
  Receive Date: 20210924
  Receipt Date: 20220106
  Transmission Date: 20220423
  Serious: Yes (Other)
  Sender: FDA-Public Use
  Company Number: CA-CELLTRION INC.-2021CA012454

PATIENT

DRUGS (6)
  1. INFLECTRA [Suspect]
     Active Substance: INFLIXIMAB-DYYB
     Indication: Crohn^s disease
     Dosage: 465 MG INDUCTION DOSES AT WEEK 0, 2 AND 6, THEN EVERY 8 WEEKS
     Route: 042
     Dates: start: 20210805
  2. INFLECTRA [Suspect]
     Active Substance: INFLIXIMAB-DYYB
     Dosage: 500MG, 5 WEEKS AND 1 DAY AFTER LAST INFUSION(WHICH TOOK PLACE ON 05AUG2021)
     Route: 042
     Dates: start: 20210910
  3. BETADINE [Concomitant]
     Active Substance: POVIDONE-IODINE
     Dosage: 1 DF
  4. DIMENHYDRINATE [Concomitant]
     Active Substance: DIMENHYDRINATE
     Indication: Premedication
     Dosage: 50 MG
     Dates: start: 20210910, end: 20210910
  5. DIPHENHYDRAMINE [Concomitant]
     Active Substance: DIPHENHYDRAMINE
     Indication: Premedication
     Dosage: 50 MG
     Dates: start: 20210910, end: 20210910
  6. NUVARING [Concomitant]
     Active Substance: ETHINYL ESTRADIOL\ETONOGESTREL
     Dosage: 1 DF

REACTIONS (12)
  - Infection [Unknown]
  - Hyperhidrosis [Unknown]
  - Flushing [Unknown]
  - Nausea [Unknown]
  - Chest discomfort [Unknown]
  - Pruritus [Not Recovered/Not Resolved]
  - Vomiting [Unknown]
  - Anxiety [Unknown]
  - Incorrect dose administered [Unknown]
  - Inappropriate schedule of product administration [Unknown]
  - Off label use [Unknown]
  - Intentional product use issue [Unknown]

NARRATIVE: CASE EVENT DATE: 20210910
